FAERS Safety Report 7298018-7 (Version None)
Quarter: 2011Q1

REPORT INFORMATION
  Report Type: 
  Country: None (occurrence: None)
  Receive Date: 20110217
  Receipt Date: 20110211
  Transmission Date: 20110831
  Serious: No
  Sender: FDA-Public Use
  Company Number: US-PFIZER INC-2011031573

PATIENT
  Sex: Male
  Weight: 81.633 kg

DRUGS (3)
  1. AMLODIPINE BESILATE / OLMESARTAN MEDOXOMIL [Concomitant]
     Indication: HYPERTENSION
     Dosage: UNK
     Route: 048
  2. VIAGRA [Suspect]
     Indication: ERECTILE DYSFUNCTION
     Dosage: 50 MG, AS NEEDED
     Dates: start: 20020101
  3. VIAGRA [Suspect]
     Indication: FATIGUE
     Dosage: 100 MG, AS NEEDED
     Route: 048
     Dates: start: 20020101, end: 20110205

REACTIONS (2)
  - BLOOD PRESSURE INCREASED [None]
  - DRUG INEFFECTIVE [None]
